FAERS Safety Report 11944818 (Version 1)
Quarter: 2016Q1

REPORT INFORMATION
  Report Type: Spontaneous
  Country: US (occurrence: US)
  Receive Date: 20160125
  Receipt Date: 20160125
  Transmission Date: 20160526
  Serious: No
  Sender: FDA-Public Use
  Company Number: US-PFIZER INC-2016021602

PATIENT

DRUGS (1)
  1. PRISTIQ EXTENDED RELEASE [Suspect]
     Active Substance: DESVENLAFAXINE SUCCINATE
     Indication: DEPRESSION
     Dosage: UNK

REACTIONS (8)
  - Feeling abnormal [Unknown]
  - Condition aggravated [Unknown]
  - Pre-existing disease [Unknown]
  - Insomnia [Unknown]
  - Thinking abnormal [Unknown]
  - Libido disorder [Unknown]
  - Irritability [Unknown]
  - Mood swings [Unknown]
